FAERS Safety Report 11926389 (Version 1)
Quarter: 2016Q1

REPORT INFORMATION
  Report Type: Spontaneous
  Country: US (occurrence: None)
  Receive Date: 20160115
  Receipt Date: 20160115
  Transmission Date: 20160526
  Serious: No
  Sender: FDA-Public Use
  Company Number: None

PATIENT
  Age: 5 Year

DRUGS (5)
  1. DEPAKOTE [Concomitant]
     Active Substance: DIVALPROEX SODIUM
  2. AFINITOR [Suspect]
     Active Substance: EVEROLIMUS
     Indication: BRAIN NEOPLASM MALIGNANT
     Dosage: MIX 1 TAB IN WATER
     Route: 048
     Dates: start: 201507
  3. AFINITOR [Suspect]
     Active Substance: EVEROLIMUS
     Indication: MALIGNANT NEOPLASM OF SPINAL CORD
     Dosage: MIX 1 TAB IN WATER
     Route: 048
     Dates: start: 201507
  4. RISPERIDONE. [Concomitant]
     Active Substance: RISPERIDONE
  5. DILANTIN [Concomitant]
     Active Substance: PHENYTOIN

REACTIONS (1)
  - Headache [None]
